FAERS Safety Report 21454300 (Version 1)
Quarter: 2022Q4

REPORT INFORMATION
  Report Type: Spontaneous
  Country: US (occurrence: US)
  Receive Date: 20221013
  Receipt Date: 20221013
  Transmission Date: 20230113
  Serious: No
  Sender: FDA-Public Use
  Company Number: US-BoehringerIngelheim-2022-BI-197243

PATIENT
  Age: 74 Year
  Sex: Male

DRUGS (1)
  1. MIRAPEX [Suspect]
     Active Substance: PRAMIPEXOLE DIHYDROCHLORIDE
     Indication: Parkinson^s disease

REACTIONS (1)
  - Compulsive sexual behaviour [Not Recovered/Not Resolved]

NARRATIVE: CASE EVENT DATE: 20220101
